FAERS Safety Report 19025888 (Version 1)
Quarter: 2021Q1

REPORT INFORMATION
  Report Type: Spontaneous
  Country: US (occurrence: US)
  Receive Date: 20210316
  Receipt Date: 20210316
  Transmission Date: 20210420
  Serious: Yes (Hospitalization)
  Sender: FDA-Public Use
  Company Number: None

PATIENT
  Age: 74 Year
  Sex: Male
  Weight: 90.72 kg

DRUGS (1)
  1. TEMAZEPAM (TEMAZEPAM 15MG CAP) [Suspect]
     Active Substance: TEMAZEPAM
     Indication: SLEEP DISORDER
     Route: 048
     Dates: start: 20201105, end: 20210127

REACTIONS (4)
  - Confusional state [None]
  - Condition aggravated [None]
  - Fall [None]
  - Delirium [None]

NARRATIVE: CASE EVENT DATE: 20210122
